FAERS Safety Report 7723203 (Version 4)
Quarter: 2012Q4

REPORT INFORMATION
  Report Type: Report from Study
  Country: FR (occurrence: FR)
  Receive Date: 20101220
  Receipt Date: 20121016
  Transmission Date: 20130627
  Serious: Yes (Death, Life-Threatening, Hospitalization, Disabling)
  Sender: FDA-Public Use
  Company Number: FR-BRISTOL-MYERS SQUIBB COMPANY-15442619

PATIENT
  Age: 71 Year
  Sex: Female

DRUGS (6)
  1. ORENCIA FOR INJ 250 MG/VIAL [Suspect]
     Indication: RHEUMATOID ARTHRITIS
     Route: 042
     Dates: start: 20081020, end: 20100622
  2. ARAVA [Suspect]
     Indication: RHEUMATOID ARTHRITIS
     Route: 048
     Dates: start: 200801
  3. CORTANCYL [Suspect]
     Indication: RHEUMATOID ARTHRITIS
     Route: 048
  4. TRIATEC [Concomitant]
     Indication: HYPERTENSION
  5. LYSANXIA [Concomitant]
     Indication: ANXIETY
  6. INEXIUM [Concomitant]
     Indication: GASTROOESOPHAGEAL REFLUX DISEASE

REACTIONS (5)
  - Pneumonia [Fatal]
  - Septic shock [Unknown]
  - Acute respiratory distress syndrome [Fatal]
  - Lung disorder [Fatal]
  - Supraventricular tachycardia [Unknown]
